FAERS Safety Report 13349809 (Version 1)
Quarter: 2017Q1

REPORT INFORMATION
  Report Type: Spontaneous
  Country: US (occurrence: US)
  Receive Date: 20170318
  Receipt Date: 20170318
  Transmission Date: 20170429
  Serious: Yes (Other)
  Sender: FDA-Public Use
  Company Number: None

PATIENT
  Age: 87 Year
  Sex: Male
  Weight: 72.9 kg

DRUGS (9)
  1. FOSINOPRIL [Concomitant]
     Active Substance: FOSINOPRIL
  2. AMLODYPINE [Concomitant]
  3. MULTIVITAMINS (NATURAL SOURCE) [Concomitant]
  4. VITAMIN D [Concomitant]
     Active Substance: CHOLECALCIFEROL
  5. FINESTERIDE [Concomitant]
     Active Substance: FINASTERIDE
  6. VITAMIN B COMPLEX [Concomitant]
     Active Substance: CYANOCOBALAMIN\DEXPANTHENOL\NIACINAMIDE\PYRIDOXINE HYDROCHLORIDE\RIBOFLAVIN 5^-PHOSPHATE SODIUM\THIAMINE HYDROCHLORIDE\VITAMIN B COMPLEX
  7. RIVASTIGMINE. [Suspect]
     Active Substance: RIVASTIGMINE
     Indication: DEMENTIA
     Dosage: QUANTITY:30 PATCH(ES);?
     Route: 062
     Dates: start: 20170301, end: 20170317
  8. LOWDOSE ASPIRIN [Concomitant]
  9. METFORMIN [Concomitant]
     Active Substance: METFORMIN HYDROCHLORIDE

REACTIONS (4)
  - Confusional state [None]
  - Micturition urgency [None]
  - Psychotic behaviour [None]
  - Hallucination, visual [None]

NARRATIVE: CASE EVENT DATE: 20170317
